FAERS Safety Report 9190636 (Version 1)
Quarter: 2013Q1

REPORT INFORMATION
  Report Type: Spontaneous
  Country: DE (occurrence: GB)
  Receive Date: 20130326
  Receipt Date: 20130326
  Transmission Date: 20140127
  Serious: Yes (Other)
  Sender: FDA-Public Use
  Company Number: GB-FRI-1000043723

PATIENT
  Age: 88 Year
  Sex: Male

DRUGS (8)
  1. MEMANTINE [Suspect]
     Indication: DEMENTIA ALZHEIMER^S TYPE
     Dosage: 20 MG
     Route: 048
     Dates: start: 201203
  2. CALCEOS [Concomitant]
     Indication: PROPHYLAXIS
     Dosage: 2 DF
     Route: 048
     Dates: start: 201010
  3. LANSOPRAZOLE [Concomitant]
     Indication: DYSPEPSIA
     Dosage: 15 MG
     Dates: start: 200912
  4. LATANOPROST [Concomitant]
     Indication: GLAUCOMA
     Dosage: 1 GTT
  5. LISINOPRIL [Concomitant]
     Dosage: 10 MG
     Route: 048
  6. PARACETAMOL [Concomitant]
     Indication: PAIN
     Dosage: 4 GRAM
     Route: 048
  7. QUETIAPINE [Concomitant]
     Indication: DEMENTIA ALZHEIMER^S TYPE
     Dosage: 25 MG
     Route: 048
  8. QVAR [Concomitant]
     Indication: ASTHMA
     Dosage: 2 DF
     Route: 055

REACTIONS (2)
  - Glomerular filtration rate decreased [Unknown]
  - Renal impairment [Unknown]
